FAERS Safety Report 4691878-5 (Version None)
Quarter: 2005Q2

REPORT INFORMATION
  Report Type: 
  Country: None (occurrence: None)
  Receive Date: 20050614
  Receipt Date: 20050614
  Transmission Date: 20051028
  Serious: Yes (Other)
  Sender: FDA-Public Use
  Company Number: None

PATIENT
  Age: 49 Year
  Sex: Male
  Weight: 87.5442 kg

DRUGS (5)
  1. SIMVASTATIN [Suspect]
     Indication: BLOOD CHOLESTEROL INCREASED
     Dosage: ONCE A DAY
     Dates: start: 20031201, end: 20040901
  2. KLONOPIN [Concomitant]
  3. WELLBUTRIN [Concomitant]
  4. DOVENOX [Concomitant]
  5. CORTISONE CREAMS [Concomitant]

REACTIONS (3)
  - HYPOTONIA [None]
  - MEMORY IMPAIRMENT [None]
  - MYALGIA [None]
